FAERS Safety Report 5242780-1 (Version None)
Quarter: 2007Q1

REPORT INFORMATION
  Report Type: 
  Country: None (occurrence: None)
  Receive Date: 20070221
  Receipt Date: 20070212
  Transmission Date: 20070707
  Serious: Yes (Hospitalization)
  Sender: FDA-Public Use
  Company Number: CA-JNJFOC-20060601047

PATIENT
  Sex: Female

DRUGS (7)
  1. REMICADE [Suspect]
     Route: 042
  2. REMICADE [Suspect]
     Route: 042
  3. REMICADE [Suspect]
     Dosage: TWO INFUSIONS ON UNKNOWN DATES
     Route: 042
  4. REMICADE [Suspect]
     Indication: CROHN'S DISEASE
     Route: 042
  5. STEROIDS [Concomitant]
  6. ANTIBIOTICS [Concomitant]
  7. INTRAVENOUS THERAPY [Concomitant]

REACTIONS (2)
  - GASTROINTESTINAL INFECTION [None]
  - WEIGHT DECREASED [None]
